FAERS Safety Report 8050150-6 (Version None)
Quarter: 2012Q1

REPORT INFORMATION
  Report Type: 
  Country: None (occurrence: None)
  Receive Date: 20120117
  Receipt Date: 20120111
  Transmission Date: 20120608
  Serious: Yes (Hospitalization)
  Sender: FDA-Public Use
  Company Number: US-MERCK-0510USA07346

PATIENT
  Age: 69 Year
  Sex: Female

DRUGS (10)
  1. LEXAPRO [Concomitant]
     Route: 065
  2. ACETAMINOPHEN AND HYDROCODONE BITARTRATE [Concomitant]
     Route: 065
  3. SYNTHROID [Concomitant]
     Route: 065
  4. WELLBUTRIN [Concomitant]
     Route: 065
  5. MIACALCIN [Concomitant]
     Route: 065
  6. TOPAMAX [Concomitant]
     Route: 065
  7. MESALAMINE [Concomitant]
     Route: 065
  8. FOSAMAX [Suspect]
     Indication: OSTEOPOROSIS
     Route: 048
     Dates: start: 20010401, end: 20051013
  9. FOSAMAX [Suspect]
     Route: 048
     Dates: start: 19960101
  10. ZYPREXA [Concomitant]
     Route: 065

REACTIONS (15)
  - ONYCHOMYCOSIS [None]
  - TOOTH DISORDER [None]
  - TOOTH ABSCESS [None]
  - GINGIVAL DISORDER [None]
  - UTERINE DISORDER [None]
  - IMPAIRED HEALING [None]
  - OSTEOMYELITIS [None]
  - PNEUMONIA [None]
  - DENTAL CARIES [None]
  - INTRACRANIAL ANEURYSM [None]
  - DRY MOUTH [None]
  - RIB FRACTURE [None]
  - ANXIETY [None]
  - OSTEONECROSIS OF JAW [None]
  - COLITIS [None]
